FAERS Safety Report 7322761-4 (Version None)
Quarter: 2011Q1

REPORT INFORMATION
  Report Type: 
  Country: None (occurrence: None)
  Receive Date: 20110301
  Receipt Date: 20110209
  Transmission Date: 20110831
  Serious: Yes (Hospitalization)
  Sender: FDA-Public Use
  Company Number: DE-ELI_LILLY_AND_COMPANY-DE201102007107

PATIENT
  Sex: Female

DRUGS (3)
  1. BERLINSULIN REGULAR [Suspect]
     Indication: GESTATIONAL DIABETES
     Dosage: 8 D/F, OTHER
     Route: 058
     Dates: start: 20101220
  2. BERLINSULIN H BASAL [Concomitant]
     Indication: GESTATIONAL DIABETES
     Route: 058
     Dates: start: 20101220
  3. BERLINSULIN REGULAR [Suspect]
     Dosage: 15 D/F, OTHER
     Route: 058
     Dates: end: 20110209

REACTIONS (6)
  - DRUG HYPERSENSITIVITY [None]
  - BLOOD PRESSURE INCREASED [None]
  - FLUSHING [None]
  - URTICARIA [None]
  - DYSPNOEA [None]
  - DRUG EXPOSURE DURING PREGNANCY [None]
